FAERS Safety Report 19602277 (Version 1)
Quarter: 2021Q3

REPORT INFORMATION
  Report Type: Spontaneous
  Country: SK (occurrence: SK)
  Receive Date: 20210723
  Receipt Date: 20210723
  Transmission Date: 20211014
  Serious: Yes (Life-Threatening, Hospitalization, Other)
  Sender: FDA-Public Use
  Company Number: SK-NOVA LABORATORIES LIMITED-2114201

PATIENT
  Age: 6 Year
  Sex: Female

DRUGS (20)
  1. AMIKACIN. [Suspect]
     Active Substance: AMIKACIN
  2. VINCRISTINE [Suspect]
     Active Substance: VINCRISTINE
  3. CALCIUM FOLINATE [Suspect]
     Active Substance: LEUCOVORIN CALCIUM
  4. PIPERACILLIN/TAZOBACTAM [Suspect]
     Active Substance: PIPERACILLIN SODIUM\TAZOBACTAM SODIUM
  5. FLUCONAZOLE. [Suspect]
     Active Substance: FLUCONAZOLE
  6. CYTARABINE. [Suspect]
     Active Substance: CYTARABINE
  7. PEGASPARGASE [Suspect]
     Active Substance: PEGASPARGASE
  8. DAUNORUBICIN [Suspect]
     Active Substance: DAUNORUBICIN
  9. AMBISOME [Suspect]
     Active Substance: AMPHOTERICIN B
  10. MEROPENEM. [Suspect]
     Active Substance: MEROPENEM
  11. VANCOMYCIN [Suspect]
     Active Substance: VANCOMYCIN
  12. PREDNISONE. [Suspect]
     Active Substance: PREDNISONE
  13. RIBAVIRIN. [Suspect]
     Active Substance: RIBAVIRIN
  14. METHOTREXATE. [Suspect]
     Active Substance: METHOTREXATE
  15. PURIXAN [Suspect]
     Active Substance: MERCAPTOPURINE
     Indication: ACUTE LYMPHOCYTIC LEUKAEMIA
  16. POSACONAZOLE [Concomitant]
     Active Substance: POSACONAZOLE
  17. CYCLOPHOSPHAMIDE. [Suspect]
     Active Substance: CYCLOPHOSPHAMIDE
  18. AMIKACIN. [Suspect]
     Active Substance: AMIKACIN
  19. AMBISOME [Suspect]
     Active Substance: AMPHOTERICIN B
  20. CASPOFUNGIN [Concomitant]
     Active Substance: CASPOFUNGIN

REACTIONS (9)
  - Mucormycosis [Recovered/Resolved]
  - Chills [Recovered/Resolved]
  - Off label use [None]
  - Febrile neutropenia [Recovering/Resolving]
  - Product use in unapproved indication [None]
  - Tremor [Recovered/Resolved]
  - Rhinocerebral mucormycosis [Recovered/Resolved]
  - Overgrowth fungal [Recovering/Resolving]
  - Pseudomonal sepsis [Recovered/Resolved]
